FAERS Safety Report 14794200 (Version 4)
Quarter: 2021Q4

REPORT INFORMATION
  Report Type: Report from Study
  Country: FR (occurrence: FR)
  Receive Date: 20180423
  Receipt Date: 20211020
  Transmission Date: 20220303
  Serious: Yes (Hospitalization, Other)
  Sender: FDA-Public Use
  Company Number: FR-SHIRE-FR201806115

PATIENT
  Age: 3 Year
  Sex: Female

DRUGS (19)
  1. METHOTREXATE [Suspect]
     Active Substance: METHOTREXATE
     Indication: Acute lymphocytic leukaemia
     Dosage: 12 MILLIGRAM (12 MG, UNK)
     Route: 037
     Dates: start: 20170928, end: 20171027
  2. METHOTREXATE [Suspect]
     Active Substance: METHOTREXATE
     Dosage: 300 MILLIGRAM (300 MG, UNK)
     Route: 042
     Dates: start: 20171211, end: 20171211
  3. METHOTREXATE [Suspect]
     Active Substance: METHOTREXATE
     Dosage: 12 MILLIGRAM (12 MG, UNK)
     Route: 037
     Dates: start: 20171219, end: 20171219
  4. METHOTREXATE [Suspect]
     Active Substance: METHOTREXATE
     Dosage: 15 MILLIGRAM (15 MG, UNK)
     Dates: start: 20171211, end: 20171226
  5. METHOTREXATE [Suspect]
     Active Substance: METHOTREXATE
     Dosage: 7.5 MILLIGRAM (7.5 UNK, UNK)
  6. DEXAMETHASONE [Suspect]
     Active Substance: DEXAMETHASONE
     Indication: Acute lymphocytic leukaemia
     Dosage: 42 MILLIGRAM (42 MG, UNK)
     Dates: start: 20170925, end: 20171001
  7. DEXAMETHASONE [Suspect]
     Active Substance: DEXAMETHASONE
     Dosage: 42 MILLIGRAM (42 MG, UNK)
     Dates: start: 20171009, end: 20171015
  8. CYTARABINE [Suspect]
     Active Substance: CYTARABINE
     Indication: Acute lymphocytic leukaemia
     Dosage: 30 MILLIGRAM (30 MILLIGRAM (30 MG, UNK))
     Route: 037
     Dates: start: 20170928, end: 20171027
  9. CYTARABINE [Suspect]
     Active Substance: CYTARABINE
     Dosage: 174 MILLIGRAM (174 MG, UNK)
     Route: 065
     Dates: start: 20171103, end: 20171106
  10. CYTARABINE [Suspect]
     Active Substance: CYTARABINE
     Dosage: 174 MILLIGRAM (174 MG, UNK)
     Route: 065
     Dates: start: 20171027, end: 20171030
  11. VINCRISTINE [Suspect]
     Active Substance: VINCRISTINE
     Indication: Acute lymphocytic leukaemia
     Dosage: 0.86 MILLIGRAM (0.86 MG, UNK)
     Route: 042
     Dates: start: 20170925, end: 20171009
  12. VINCRISTINE [Suspect]
     Active Substance: VINCRISTINE
     Dosage: 0.87 MILLIGRAM (0.87 MG, UNK)
     Route: 042
     Dates: start: 20171113, end: 20171120
  13. PEGASPARGASE [Suspect]
     Active Substance: PEGASPARGASE
     Indication: Acute lymphocytic leukaemia
     Dosage: 1425 INTERNATIONAL UNIT (1425 IU, UNK)
     Route: 042
     Dates: start: 20170928, end: 20171113
  14. CYCLOPHOSPHAMIDE [Suspect]
     Active Substance: CYCLOPHOSPHAMIDE
     Indication: Acute lymphocytic leukaemia
     Dosage: 580 MILLIGRAM (580 MG, UNK)
     Route: 065
     Dates: start: 20171025, end: 20171112
  15. DOXORUBICIN [Suspect]
     Active Substance: DOXORUBICIN
     Indication: Acute lymphocytic leukaemia
     Dosage: 14.4 MILLIGRAM (14.4 MG, UNK)
     Route: 042
     Dates: start: 20170925, end: 20171009
  16. MERCAPTOPURINE [Suspect]
     Active Substance: MERCAPTOPURINE
     Indication: Acute lymphocytic leukaemia
     Dosage: 490 MILLIGRAM (490 MG, UNK)
     Dates: start: 20171025, end: 20171112
  17. MERCAPTOPURINE [Suspect]
     Active Substance: MERCAPTOPURINE
     Indication: Product used for unknown indication
     Dosage: 30 MILLIGRAM (30 UNK, UNK)
     Route: 048
     Dates: start: 20171211, end: 20171227
  18. MERCAPTOPURINE [Suspect]
     Active Substance: MERCAPTOPURINE
     Dosage: 14 MILLIGRAM (14 MG, UNK)
     Route: 048
     Dates: start: 20180116
  19. METHOTREXATE (METHOTREXATE SODIUM) [Suspect]
     Active Substance: METHOTREXATE SODIUM
     Indication: Product used for unknown indication
     Dosage: 7.5 MILLIGRAM (7.5 MG, UNK   )
     Route: 048
     Dates: start: 20180116

REACTIONS (4)
  - Pulmonary haemorrhage [Recovered/Resolved]
  - Lung disorder [Recovered/Resolved]
  - Febrile bone marrow aplasia [Recovered/Resolved]
  - Respiratory syncytial virus infection [Recovered/Resolved]

NARRATIVE: CASE EVENT DATE: 20171227
